FAERS Safety Report 20949676 (Version 1)
Quarter: 2022Q2

REPORT INFORMATION
  Report Type: Spontaneous
  Country: US (occurrence: US)
  Receive Date: 20220613
  Receipt Date: 20220613
  Transmission Date: 20220721
  Serious: No
  Sender: FDA-Public Use
  Company Number: US-SUN PHARMACEUTICAL INDUSTRIES LTD-2021R1-305403

PATIENT
  Sex: Female

DRUGS (1)
  1. DOXYCYCLINE [Suspect]
     Active Substance: DOXYCYCLINE
     Indication: Eye infection
     Dosage: UNK
     Route: 065

REACTIONS (5)
  - Blister [Unknown]
  - Inflammation [Unknown]
  - Gingivitis [Unknown]
  - Abdominal discomfort [Unknown]
  - Sunburn [Unknown]
